FAERS Safety Report 6198109-8 (Version None)
Quarter: 2009Q2

REPORT INFORMATION
  Report Type: 
  Country: None (occurrence: None)
  Receive Date: 20090519
  Receipt Date: 20090511
  Transmission Date: 20091009
  Serious: Yes (Hospitalization)
  Sender: FDA-Public Use
  Company Number: TPA2009A01005

PATIENT
  Age: 63 Year
  Sex: Male

DRUGS (14)
  1. PREVACID [Suspect]
     Dosage: 30 MG, 2 IN 1 D, PER ORAL
     Route: 048
     Dates: start: 20090301
  2. THROMBIN-RECEPTOR ANTAGONIST (STUDY DRUG) (ALL OTHER THERAPEUTIC PRODU [Suspect]
     Indication: THROMBOSIS PROPHYLAXIS
     Dosage: 2.5 MG 1 IN 1 D, PER ORAL; 2.5 MG, 1 IN 1 D, PER ORAL
     Route: 048
     Dates: start: 20081029, end: 20090304
  3. THROMBIN-RECEPTOR ANTAGONIST (STUDY DRUG) (ALL OTHER THERAPEUTIC PRODU [Suspect]
     Indication: THROMBOSIS PROPHYLAXIS
     Dosage: 2.5 MG 1 IN 1 D, PER ORAL; 2.5 MG, 1 IN 1 D, PER ORAL
     Route: 048
     Dates: start: 20090314
  4. AMOXICILLIN [Suspect]
     Dosage: 500 MG, 2 IN 1 D, PER ORAL
     Route: 048
     Dates: start: 20090301
  5. CARAFATE [Suspect]
     Dosage: 1 GM, 3 IN 1 D, PER ORAL
     Route: 048
     Dates: start: 20090301
  6. CLARITHROMYCIN [Suspect]
     Dosage: 500 MG, 2 IN 1 D, PER ORAL
     Route: 048
     Dates: start: 20090301
  7. FLUCONAZOLE [Suspect]
     Dosage: 100 MG, QAM, PER ORAL
     Route: 048
     Dates: start: 20090301
  8. CARVEDILOL [Concomitant]
  9. CLOPIDOGREL [Concomitant]
  10. ASPIRIN [Concomitant]
  11. ATORVASTATIN CALCIUM [Concomitant]
  12. NORVASC [Concomitant]
  13. AUGMENTIN (AMOXICILLIN, CLAVULANATE POTASSIUM) [Concomitant]
  14. LOVASTATIN [Concomitant]

REACTIONS (3)
  - ATRIAL FIBRILLATION [None]
  - CARDIAC TAMPONADE [None]
  - CEREBRAL ISCHAEMIA [None]
